FAERS Safety Report 7285432-9 (Version None)
Quarter: 2011Q1

REPORT INFORMATION
  Report Type: 
  Country: None (occurrence: None)
  Receive Date: 20110210
  Receipt Date: 20101109
  Transmission Date: 20110831
  Serious: Yes (Other)
  Sender: FDA-Public Use
  Company Number: US-BAYER-201037709NA

PATIENT
  Sex: Female
  Weight: 53.515 kg

DRUGS (9)
  1. OCELLA [Suspect]
     Indication: ACNE
  2. SOMA [Concomitant]
  3. ALBUTEROL [Concomitant]
     Indication: ASTHMA
     Dosage: UNK
     Dates: start: 19920101
  4. LEXAPRO [Concomitant]
  5. YASMIN [Suspect]
     Indication: ACNE
     Dosage: UNK UNK, QD
     Dates: start: 20050601, end: 20060219
  6. YAZ [Suspect]
     Indication: ACNE
     Dosage: UNK UNK, QD
     Dates: start: 20070101
  7. UNCODEABLE ^UNCLASSIFIABLE^ [Concomitant]
  8. OXYCODONE HCL AND ACETAMINOPHEN [Concomitant]
  9. UNCODEABLE ^UNCLASSIFIABLE^ [Concomitant]

REACTIONS (5)
  - PAIN [None]
  - CHOLELITHIASIS [None]
  - INJURY [None]
  - LYMPHADENOPATHY [None]
  - GALLBLADDER CHOLESTEROLOSIS [None]
